FAERS Safety Report 6431747-3 (Version None)
Quarter: 2009Q4

REPORT INFORMATION
  Report Type: 
  Country: None (occurrence: None)
  Receive Date: 20091104
  Receipt Date: 20091026
  Transmission Date: 20100525
  Serious: Yes (Disabling)
  Sender: FDA-Public Use
  Company Number: 415367

PATIENT
  Sex: Male

DRUGS (1)
  1. MARCAINE [Suspect]
     Indication: ANALGESIC THERAPY
     Dosage: 300 CUBIC CM, INJECTION
     Dates: start: 20040308

REACTIONS (6)
  - ANXIETY [None]
  - CHONDROLYSIS [None]
  - CHONDROPATHY [None]
  - EMOTIONAL DISTRESS [None]
  - MUSCULOSKELETAL PAIN [None]
  - PAIN [None]
